FAERS Safety Report 5022784-4 (Version None)
Quarter: 2006Q2

REPORT INFORMATION
  Report Type: 
  Country: None (occurrence: None)
  Receive Date: 20060609
  Receipt Date: 20060601
  Transmission Date: 20061013
  Serious: Yes (Hospitalization)
  Sender: FDA-Public Use
  Company Number: DE-ABBOTT-06P-062-0334942-00

PATIENT
  Age: 78 Year
  Sex: Female

DRUGS (4)
  1. HUMIRA [Suspect]
     Indication: RHEUMATOID ARTHRITIS
     Route: 058
     Dates: start: 20040316, end: 20060201
  2. HUMIRA [Suspect]
     Route: 058
     Dates: start: 20060510
  3. PREDNISOLONE [Concomitant]
     Indication: RHEUMATOID ARTHRITIS
     Route: 048
  4. ANALGETICS [Concomitant]
     Indication: RHEUMATOID ARTHRITIS

REACTIONS (2)
  - FOOT DEFORMITY [None]
  - IMPAIRED HEALING [None]
